FAERS Safety Report 25062193 (Version 1)
Quarter: 2025Q1

REPORT INFORMATION
  Report Type: Spontaneous
  Country: US (occurrence: US)
  Receive Date: 20250311
  Receipt Date: 20250311
  Transmission Date: 20250409
  Serious: No
  Sender: GLAXOSMITHKLINE
  Company Number: US-GSK-US2025027234

PATIENT
  Age: 71 Year
  Sex: Female

DRUGS (1)
  1. BENLYSTA [Suspect]
     Active Substance: BELIMUMAB
     Indication: Cutaneous sarcoidosis
     Dates: start: 20250129

REACTIONS (6)
  - Cutaneous sarcoidosis [Unknown]
  - Condition aggravated [Unknown]
  - Food allergy [Not Recovered/Not Resolved]
  - Back disorder [Unknown]
  - Burning sensation [Unknown]
  - Product dose omission issue [Unknown]

NARRATIVE: CASE EVENT DATE: 20250205
